FAERS Safety Report 6657222-9 (Version None)
Quarter: 2010Q1

REPORT INFORMATION
  Report Type: 
  Country: None (occurrence: None)
  Receive Date: 20100317
  Receipt Date: 20091027
  Transmission Date: 20100710
  Serious: No
  Sender: FDA-Public Use
  Company Number: DSA_41898_2009

PATIENT
  Sex: Female
  Weight: 62.5964 kg

DRUGS (10)
  1. XENAZINE [Suspect]
     Indication: OBSESSIVE-COMPULSIVE DISORDER
     Dosage: SEE IMAGE
     Route: 048
     Dates: start: 20090915, end: 20091001
  2. XENAZINE [Suspect]
     Indication: OBSESSIVE-COMPULSIVE DISORDER
     Dosage: SEE IMAGE
     Route: 048
     Dates: start: 20091024, end: 20091027
  3. XENAZINE [Suspect]
     Indication: OBSESSIVE-COMPULSIVE DISORDER
     Dosage: SEE IMAGE
     Route: 048
     Dates: start: 20091102, end: 20091106
  4. XENAZINE [Suspect]
     Indication: OBSESSIVE-COMPULSIVE DISORDER
     Dosage: SEE IMAGE
     Route: 048
     Dates: start: 20091109, end: 20091110
  5. XENAZINE [Suspect]
     Indication: OBSESSIVE-COMPULSIVE DISORDER
     Dosage: SEE IMAGE
     Route: 048
     Dates: start: 20091101, end: 20091114
  6. PROZAC [Concomitant]
  7. AMBIEN [Concomitant]
  8. MELATONIN [Concomitant]
  9. PRIMIDONE [Concomitant]
  10. BENADRYL [Concomitant]

REACTIONS (5)
  - DRUG ADMINISTRATION ERROR [None]
  - HEADACHE [None]
  - NAUSEA [None]
  - RETCHING [None]
  - VOMITING [None]
